FAERS Safety Report 4940878-6 (Version None)
Quarter: 2006Q1

REPORT INFORMATION
  Report Type: 
  Country: None (occurrence: None)
  Receive Date: 20060313
  Receipt Date: 20060207
  Transmission Date: 20060701
  Serious: Yes (Hospitalization)
  Sender: FDA-Public Use
  Company Number: US-BRISTOL-MYERS SQUIBB COMPANY-13274881

PATIENT
  Age: 68 Year
  Sex: Male
  Weight: 77 kg

DRUGS (5)
  1. ERBITUX [Suspect]
     Indication: COLON CANCER
     Route: 042
     Dates: start: 20060202, end: 20060202
  2. ERBITUX [Suspect]
     Route: 042
     Dates: start: 20060202, end: 20060202
  3. BENADRYL [Concomitant]
     Indication: PREMEDICATION
  4. CAMPTOSAR [Concomitant]
  5. INSULIN [Concomitant]

REACTIONS (3)
  - CARDIAC ARREST [None]
  - OBSTRUCTIVE AIRWAYS DISORDER [None]
  - PNEUMONIA [None]
